FAERS Safety Report 24366725 (Version 1)
Quarter: 2024Q3

REPORT INFORMATION
  Report Type: Spontaneous
  Country: US (occurrence: None)
  Receive Date: 20240926
  Receipt Date: 20240926
  Transmission Date: 20241017
  Serious: Yes (Death, Hospitalization)
  Sender: Public
  Company Number: None

PATIENT
  Sex: Female
  Weight: 39.7 kg

DRUGS (2)
  1. LOMUSTINE [Suspect]
     Active Substance: LOMUSTINE
  2. TEMOZOLOMIDE [Concomitant]
     Active Substance: TEMOZOLOMIDE

REACTIONS (23)
  - Multiple organ dysfunction syndrome [None]
  - Glioblastoma [None]
  - Malignant neoplasm progression [None]
  - Acute respiratory failure [None]
  - Respiratory failure [None]
  - Shock [None]
  - Dehydration [None]
  - Sepsis [None]
  - Acute kidney injury [None]
  - Lactic acidosis [None]
  - Malnutrition [None]
  - Anaemia [None]
  - Thrombocytopenia [None]
  - Lymphocyte count decreased [None]
  - International normalised ratio increased [None]
  - Hyperglycaemia [None]
  - Blood creatinine increased [None]
  - Hypoalbuminaemia [None]
  - Alanine aminotransferase increased [None]
  - Aspartate aminotransferase increased [None]
  - Hypermagnesaemia [None]
  - Atrial fibrillation [None]
  - Weight decreased [None]

NARRATIVE: CASE EVENT DATE: 20240824
